FAERS Safety Report 12439857 (Version 1)
Quarter: 2016Q2

REPORT INFORMATION
  Report Type: Spontaneous
  Country: FR (occurrence: FR)
  Receive Date: 20160606
  Receipt Date: 20160606
  Transmission Date: 20160815
  Serious: Yes (Hospitalization)
  Sender: FDA-Public Use
  Company Number: FR-TEVA-663717ISR

PATIENT
  Age: 63 Year
  Sex: Female

DRUGS (8)
  1. TEPADINA [Suspect]
     Active Substance: THIOTEPA
     Indication: CHEMOTHERAPY
     Dosage: 245 MILLIGRAM DAILY;
     Route: 042
     Dates: start: 20160318, end: 20160318
  2. FLUDARABINE TEVA 25 MG/ML [Suspect]
     Active Substance: FLUDARABINE PHOSPHATE
     Indication: CHEMOTHERAPY
     Dosage: 57 MILLIGRAM DAILY; EXACT FORM: SOLUTION TO BE DILUTED FOR INJECTION OR INFUSION
     Route: 042
     Dates: start: 20160317, end: 20160320
  3. ENDOXAN [Suspect]
     Active Substance: CYCLOPHOSPHAMIDE
     Dosage: 2450 MILLIGRAM DAILY;
     Route: 042
     Dates: start: 20160329, end: 20160329
  4. CEFTAZIDIME PANPHARMA [Suspect]
     Active Substance: CEFTAZIDIME
     Indication: ANTIBIOTIC PROPHYLAXIS
     Route: 042
     Dates: start: 20160325, end: 20160429
  5. BUSILEX 6 MG/ML [Suspect]
     Active Substance: BUSULFAN
     Indication: CHEMOTHERAPY
     Dosage: 156 MILLIGRAM DAILY;
     Route: 042
     Dates: start: 20160320, end: 20160321
  6. ZOVIRAX [Suspect]
     Active Substance: ACYCLOVIR
     Indication: ANTIVIRAL PROPHYLAXIS
     Dates: start: 20160328, end: 20160419
  7. CELLCEPT [Suspect]
     Active Substance: MYCOPHENOLATE MOFETIL\MYCOPHENOLATE MOFETIL HYDROCHLORIDE
     Indication: PROPHYLAXIS AGAINST TRANSPLANT REJECTION
     Route: 042
     Dates: start: 20160330, end: 20160420
  8. ENDOXAN [Suspect]
     Active Substance: CYCLOPHOSPHAMIDE
     Indication: CHEMOTHERAPY
     Dosage: 2450 MILLIGRAM DAILY;
     Route: 042
     Dates: start: 20160327, end: 20160327

REACTIONS (2)
  - Toxic encephalopathy [None]
  - Encephalopathy [Not Recovered/Not Resolved]

NARRATIVE: CASE EVENT DATE: 20160406
